FAERS Safety Report 14710537 (Version 1)
Quarter: 2018Q2

REPORT INFORMATION
  Report Type: Spontaneous
  Country: US (occurrence: US)
  Receive Date: 20180403
  Receipt Date: 20180403
  Transmission Date: 20180711
  Serious: No
  Sender: FDA-Public Use
  Company Number: US-ROCHE-2065453

PATIENT
  Age: 59 Year
  Sex: Male
  Weight: 81.72 kg

DRUGS (1)
  1. ERIVEDGE [Suspect]
     Active Substance: VISMODEGIB
     Indication: SKIN CANCER
     Dosage: NO
     Route: 048
     Dates: start: 201710, end: 20180122

REACTIONS (3)
  - Ageusia [Recovering/Resolving]
  - Muscle spasms [Recovering/Resolving]
  - Alopecia [Recovering/Resolving]

NARRATIVE: CASE EVENT DATE: 201710
